FAERS Safety Report 6973796-2 (Version None)
Quarter: 2010Q3

REPORT INFORMATION
  Report Type: 
  Country: None (occurrence: None)
  Receive Date: 20100909
  Receipt Date: 20100903
  Transmission Date: 20110219
  Serious: Yes (Other)
  Sender: FDA-Public Use
  Company Number: A0879563A

PATIENT
  Age: 56 Year
  Sex: Female

DRUGS (5)
  1. ADVAIR DISKUS 100/50 [Suspect]
     Indication: ASTHMA
     Route: 055
     Dates: start: 19890101
  2. SYNTHROID [Concomitant]
  3. PREDNISONE [Concomitant]
  4. CARDIZEM [Concomitant]
  5. ALBUTEROL [Concomitant]

REACTIONS (3)
  - ARTHRALGIA [None]
  - ASTHMA [None]
  - GAIT DISTURBANCE [None]
